FAERS Safety Report 5175877-5 (Version None)
Quarter: 2006Q4

REPORT INFORMATION
  Report Type: 
  Country: None (occurrence: None)
  Receive Date: 20061215
  Receipt Date: 20061206
  Transmission Date: 20070319
  Serious: Yes (Other)
  Sender: FDA-Public Use
  Company Number: CA-GLAXOSMITHKLINE-A0630822A

PATIENT
  Age: 44 Year
  Sex: Male
  Weight: 107 kg

DRUGS (5)
  1. COMBIVIR [Suspect]
     Indication: HIV INFECTION
     Route: 048
     Dates: start: 20050601
  2. BUPROPION HCL [Concomitant]
     Dosage: 100MG TWICE PER DAY
     Route: 048
  3. FLUOXETINE [Concomitant]
     Dosage: 10MG PER DAY
     Route: 048
  4. VIRAMUNE [Concomitant]
     Dosage: 200MG TWICE PER DAY
  5. IBUPROFEN [Concomitant]
     Dosage: 400MG AS REQUIRED

REACTIONS (1)
  - MACROCYTOSIS [None]
